FAERS Safety Report 21946466 (Version 1)
Quarter: 2023Q1

REPORT INFORMATION
  Report Type: Spontaneous
  Country: US (occurrence: US)
  Receive Date: 20230202
  Receipt Date: 20230202
  Transmission Date: 20230418
  Serious: No
  Sender: FDA-Public Use
  Company Number: US-INCYTE CORPORATION-2022IN006260

PATIENT

DRUGS (5)
  1. OPZELURA [Suspect]
     Active Substance: RUXOLITINIB PHOSPHATE
     Indication: Dermatitis atopic
     Route: 065
  2. EUCRISA [Suspect]
     Active Substance: CRISABOROLE
     Route: 065
  3. CIBINQO [Suspect]
     Active Substance: ABROCITINIB
     Route: 065
  4. PREDNISONE [Suspect]
     Active Substance: PREDNISONE
     Route: 065
  5. ELIDEL [Suspect]
     Active Substance: PIMECROLIMUS
     Route: 065

REACTIONS (1)
  - Treatment failure [Unknown]
